FAERS Safety Report 6364117-7 (Version None)
Quarter: 2009Q3

REPORT INFORMATION
  Report Type: 
  Country: None (occurrence: None)
  Receive Date: 20090919
  Receipt Date: 20090827
  Transmission Date: 20100115
  Serious: No
  Sender: FDA-Public Use
  Company Number: US-ABBOTT-09P-163-0578615-00

PATIENT
  Sex: Female
  Weight: 54.48 kg

DRUGS (3)
  1. HUMIRA [Suspect]
     Indication: RHEUMATOID ARTHRITIS
     Route: 058
     Dates: start: 20081201, end: 20090301
  2. HUMIRA [Suspect]
     Route: 058
     Dates: start: 20090601
  3. METHOTREXATE [Suspect]
     Indication: RHEUMATOID ARTHRITIS
     Dates: start: 20070101, end: 20090301

REACTIONS (5)
  - INJECTION SITE PAIN [None]
  - PARAESTHESIA [None]
  - PARANASAL SINUS HYPERSECRETION [None]
  - PRODUCTIVE COUGH [None]
  - SINUSITIS [None]
